FAERS Safety Report 7217692-4 (Version None)
Quarter: 2011Q1

REPORT INFORMATION
  Report Type: 
  Country: None (occurrence: None)
  Receive Date: 20110110
  Receipt Date: 20110101
  Transmission Date: 20110831
  Serious: Yes (Other)
  Sender: FDA-Public Use
  Company Number: US-B.I. PHARMACEUTICALS,INC./RIDGEFIELD-2011-BP-00418BP

PATIENT
  Age: 93 Year
  Sex: Female

DRUGS (4)
  1. PRADAXA [Suspect]
     Dosage: 75 MG
     Route: 048
     Dates: start: 20101201
  2. PRADAXA [Suspect]
     Indication: ATRIAL FIBRILLATION
     Dosage: 150 MG
     Route: 048
     Dates: start: 20101130, end: 20101201
  3. METOPROLOL [Concomitant]
     Indication: HEART RATE IRREGULAR
  4. VALIUM [Concomitant]
     Indication: INSOMNIA
     Dosage: 10 MG

REACTIONS (3)
  - CARDIAC PACEMAKER INSERTION [None]
  - FAECES DISCOLOURED [None]
  - BLOOD URINE PRESENT [None]
